FAERS Safety Report 6815595-8 (Version None)
Quarter: 2010Q3

REPORT INFORMATION
  Report Type: 
  Country: None (occurrence: None)
  Receive Date: 20100702
  Receipt Date: 20100629
  Transmission Date: 20110219
  Serious: Yes (Death)
  Sender: FDA-Public Use
  Company Number: CA-ELI_LILLY_AND_COMPANY-CA201006007675

PATIENT
  Sex: Male

DRUGS (3)
  1. ALIMTA [Suspect]
     Indication: MESOTHELIOMA
     Dates: start: 20100201
  2. CISPLATIN [Concomitant]
     Indication: MESOTHELIOMA
     Dates: start: 20100201
  3. ANTIBIOTICS [Concomitant]

REACTIONS (2)
  - DEATH [None]
  - MALAISE [None]
